FAERS Safety Report 16237888 (Version 1)
Quarter: 2019Q2

REPORT INFORMATION
  Report Type: Spontaneous
  Country: JP (occurrence: JP)
  Receive Date: 20190425
  Receipt Date: 20190425
  Transmission Date: 20190711
  Serious: Yes (Death, Life-Threatening, Hospitalization, Other)
  Sender: FDA-Public Use
  Company Number: JP-JNJFOC-20190435297

PATIENT
  Age: 20 Year
  Sex: Male

DRUGS (5)
  1. INFLIXIMAB, RECOMBINANT [Suspect]
     Active Substance: INFLIXIMAB
     Indication: CROHN^S DISEASE
     Route: 042
  2. AZATHIOPRINE. [Suspect]
     Active Substance: AZATHIOPRINE
     Indication: CROHN^S DISEASE
     Route: 065
  3. INFLIXIMAB, RECOMBINANT [Suspect]
     Active Substance: INFLIXIMAB
     Indication: CROHN^S DISEASE
     Route: 042
  4. INFLIXIMAB, RECOMBINANT [Suspect]
     Active Substance: INFLIXIMAB
     Indication: CROHN^S DISEASE
     Route: 042
  5. ADALIMUMAB [Suspect]
     Active Substance: ADALIMUMAB
     Indication: CROHN^S DISEASE
     Route: 065

REACTIONS (11)
  - Crohn^s disease [Fatal]
  - Small intestinal perforation [Unknown]
  - Diffuse large B-cell lymphoma stage IV [Fatal]
  - Anal abscess [Unknown]
  - Epstein-Barr virus associated lymphoproliferative disorder [Fatal]
  - Epstein Barr virus positive mucocutaneous ulcer [Fatal]
  - Intestinal fistula [Unknown]
  - Off label use [Unknown]
  - Product use issue [Unknown]
  - Therapeutic response decreased [Unknown]
  - Large intestinal stenosis [Fatal]
